FAERS Safety Report 9242331 (Version 3)
Quarter: 2013Q4

REPORT INFORMATION
  Report Type: Spontaneous
  Country: DE (occurrence: DE)
  Receive Date: 20130419
  Receipt Date: 20131115
  Transmission Date: 20140711
  Serious: Yes (Other)
  Sender: FDA-Public Use
  Company Number: DE-CELGENEUS-062-21660-13021190

PATIENT
  Age: 44 Year
  Sex: Female

DRUGS (9)
  1. ABRAXANE [Suspect]
     Indication: BREAST CANCER
     Dosage: 150 MILLIGRAM/SQ. METER
     Route: 065
     Dates: start: 20120103, end: 20120410
  2. EPIRUBICIN [Concomitant]
     Indication: BREAST CANCER
     Dosage: 90 MICROGRAM/SQ. METER
     Route: 065
  3. CYCLOPHOSPHAMIDE [Concomitant]
     Indication: BREAST CANCER
     Dosage: 600 MILLIGRAM/SQ. METER
     Route: 065
  4. 5-FU [Concomitant]
     Indication: BREAST CANCER
     Route: 065
  5. NOVALGIN [Concomitant]
     Indication: PREMEDICATION
     Route: 065
  6. IODTHYROX [Concomitant]
     Indication: PRODUCT USED FOR UNKNOWN INDICATION
     Dosage: 100 MILLIGRAM
     Route: 065
  7. SELENASE [Concomitant]
     Indication: PRODUCT USED FOR UNKNOWN INDICATION
     Route: 065
  8. TANTUM VERDE [Concomitant]
     Indication: PRODUCT USED FOR UNKNOWN INDICATION
     Route: 065
     Dates: start: 20120103
  9. TORASEMIDE [Concomitant]
     Indication: PRODUCT USED FOR UNKNOWN INDICATION
     Route: 065
     Dates: start: 20120327

REACTIONS (7)
  - Palmar-plantar erythrodysaesthesia syndrome [Recovered/Resolved]
  - Mucosal inflammation [Recovered/Resolved]
  - Nausea [Recovered/Resolved]
  - Fatigue [Recovered/Resolved]
  - Leukopenia [Recovered/Resolved]
  - Anaemia [Recovered/Resolved]
  - Neuropathy peripheral [Recovered/Resolved]
